FAERS Safety Report 9637543 (Version 3)
Quarter: 2014Q1

REPORT INFORMATION
  Report Type: Spontaneous
  Country: US (occurrence: None)
  Receive Date: 20131018
  Receipt Date: 20140131
  Transmission Date: 20141002
  Serious: Yes (Other)
  Sender: FDA-Public Use
  Company Number: 130344

PATIENT
  Age: 66 Year
  Sex: Female
  Weight: 77.11 kg

DRUGS (3)
  1. SUPREP BOWEL PREP KIT [Suspect]
     Indication: COLONOSCOPY
     Dosage: 1.5 X 6OZ BOTTLE
     Route: 048
     Dates: start: 20131008, end: 20131009
  2. CHOLESTEROL MEDICATION [Concomitant]
  3. ASPIRIN [Concomitant]

REACTIONS (8)
  - Abdominal pain [None]
  - Flatulence [None]
  - Abdominal distension [None]
  - Nausea [None]
  - Vomiting [None]
  - Haematemesis [None]
  - Oropharyngeal pain [None]
  - Intestinal polyp [None]
